FAERS Safety Report 14135079 (Version 1)
Quarter: 2017Q4

REPORT INFORMATION
  Report Type: Spontaneous
  Country: CN (occurrence: CN)
  Receive Date: 20171027
  Receipt Date: 20171027
  Transmission Date: 20180321
  Serious: Yes (Other)
  Sender: FDA-Public Use
  Company Number: PHHY2017CN154824

PATIENT
  Age: 63 Year
  Sex: Male

DRUGS (1)
  1. AMLODIPINE [Suspect]
     Active Substance: AMLODIPINE BESYLATE
     Indication: ESSENTIAL HYPERTENSION
     Dosage: 1 DF, QD (AMLODIPINE 5 MG AND VALSARTAN 80 MG)
     Route: 048

REACTIONS (3)
  - Hypotension [Recovered/Resolved]
  - Coronary artery insufficiency [Recovered/Resolved]
  - Angina pectoris [Recovered/Resolved]
